FAERS Safety Report 12808523 (Version 1)
Quarter: 2016Q4

REPORT INFORMATION
  Report Type: Spontaneous
  Country: GB (occurrence: GB)
  Receive Date: 20161004
  Receipt Date: 20161004
  Transmission Date: 20170207
  Serious: Yes (Hospitalization, Other)
  Sender: FDA-Public Use
  Company Number: GB-TEVA-674430ACC

PATIENT
  Age: 44 Year
  Sex: Female

DRUGS (21)
  1. CLOPIXOL ACUPHASE [Suspect]
     Active Substance: ZUCLOPENTHIXOL ACETATE
     Indication: MANIA
     Dosage: 150 MG, UNK
     Route: 030
     Dates: start: 20150412, end: 20150412
  2. CLOPIXOL ACUPHASE [Suspect]
     Active Substance: ZUCLOPENTHIXOL ACETATE
     Dosage: 50 MG, UNK
     Route: 030
     Dates: start: 20150331, end: 20150331
  3. CLOPIXOL ACUPHASE [Suspect]
     Active Substance: ZUCLOPENTHIXOL ACETATE
     Dosage: 50 MG, UNK
     Route: 030
     Dates: start: 20150401, end: 20150401
  4. ARIPIPRAZOLE. [Suspect]
     Active Substance: ARIPIPRAZOLE
     Route: 048
     Dates: start: 20150130, end: 20150413
  5. CLOPIXOL ACUPHASE [Suspect]
     Active Substance: ZUCLOPENTHIXOL ACETATE
     Dosage: 100 MG, UNK
     Route: 030
     Dates: start: 20150402, end: 20150402
  6. ARIPIPRAZOLE. [Suspect]
     Active Substance: ARIPIPRAZOLE
     Indication: BIPOLAR I DISORDER
     Dosage: 10
     Route: 065
     Dates: start: 20150330
  7. ARIPIPRAZOLE. [Suspect]
     Active Substance: ARIPIPRAZOLE
     Dosage: 15 MILLIGRAM DAILY;
     Route: 065
     Dates: start: 20150407
  8. ABILIFY [Suspect]
     Active Substance: ARIPIPRAZOLE
     Indication: BIPOLAR I DISORDER
     Dosage: 15 MG, UNK
     Route: 048
     Dates: start: 20150130, end: 20150413
  9. CLONAZEPAM. [Suspect]
     Active Substance: CLONAZEPAM
     Indication: PRODUCT USED FOR UNKNOWN INDICATION
     Dosage: 3 MILLIGRAM DAILY; 1 MG, TID
     Route: 048
     Dates: start: 20150329, end: 20150413
  10. CLOPIXOL ACUPHASE [Suspect]
     Active Substance: ZUCLOPENTHIXOL ACETATE
     Dosage: 100 MG, UNK
     Route: 030
     Dates: start: 20150401, end: 20150401
  11. LORAZEPAM. [Suspect]
     Active Substance: LORAZEPAM
     Indication: PRODUCT USED FOR UNKNOWN INDICATION
     Dosage: 4 MG, UNK
     Route: 030
     Dates: start: 20150401, end: 20150402
  12. CLONAZEPAM. [Suspect]
     Active Substance: CLONAZEPAM
     Dosage: 3 MILLIGRAM DAILY; 3 MG, QD
     Route: 048
     Dates: start: 20150329, end: 20150413
  13. ARIPIPRAZOLE. [Suspect]
     Active Substance: ARIPIPRAZOLE
     Dosage: 20 MILLIGRAM DAILY;
     Route: 065
     Dates: start: 20150409, end: 20150413
  14. ABILIFY [Suspect]
     Active Substance: ARIPIPRAZOLE
     Dosage: 20 MILLIGRAM DAILY; 10 UNK. UNK
     Route: 065
     Dates: start: 20150409, end: 20150413
  15. OLANZAPINE. [Suspect]
     Active Substance: OLANZAPINE
     Indication: PRODUCT USED FOR UNKNOWN INDICATION
     Dosage: 20 MG, PRN
     Route: 048
     Dates: start: 20150330, end: 20150412
  16. CLOPIXOL ACUPHASE [Suspect]
     Active Substance: ZUCLOPENTHIXOL ACETATE
     Dosage: 100 MG, UNK
     Route: 030
     Dates: start: 20150412
  17. CLOPIXOL ACUPHASE [Suspect]
     Active Substance: ZUCLOPENTHIXOL ACETATE
     Dosage: 150 MG, UNK
     Route: 030
     Dates: start: 20150412, end: 20150412
  18. LORAZEPAM. [Suspect]
     Active Substance: LORAZEPAM
     Dosage: 20 MILLIGRAM DAILY; 20 MG, QD
     Route: 030
     Dates: start: 20150330, end: 20150412
  19. ABILIFY [Suspect]
     Active Substance: ARIPIPRAZOLE
     Dosage: 10 UNK, UNK
     Route: 065
     Dates: start: 20150330
  20. ABILIFY [Suspect]
     Active Substance: ARIPIPRAZOLE
     Dosage: 15 MILLIGRAM DAILY; 10 UNK, UNK
     Route: 065
     Dates: start: 20150407
  21. CLOPIXOL ACUPHASE [Suspect]
     Active Substance: ZUCLOPENTHIXOL ACETATE
     Dosage: 100 MG, UNK
     Route: 030
     Dates: start: 20150413, end: 20150413

REACTIONS (3)
  - Prescribed overdose [Recovered/Resolved]
  - Neutropenia [Recovered/Resolved]
  - Medication error [Recovered/Resolved]

NARRATIVE: CASE EVENT DATE: 20150414
